FAERS Safety Report 5109266-6 (Version None)
Quarter: 2006Q3

REPORT INFORMATION
  Report Type: 
  Country: None (occurrence: None)
  Receive Date: 20060918
  Receipt Date: 20060905
  Transmission Date: 20061208
  Serious: Yes (Death, Hospitalization)
  Sender: FDA-Public Use
  Company Number: US200603006785

PATIENT
  Age: 65 Year
  Sex: Male
  Weight: 83 kg

DRUGS (3)
  1. ZYPREXA [Suspect]
     Indication: MANIA
     Dosage: SEE IMAGE
     Dates: end: 20050501
  2. ZYPREXA [Suspect]
     Indication: MANIA
     Dosage: SEE IMAGE
     Dates: start: 20011001
  3. LITHIUM (LITHIUM) [Concomitant]

REACTIONS (13)
  - ARRHYTHMIA [None]
  - BLOOD CHOLESTEROL ABNORMAL [None]
  - BLOOD TRIGLYCERIDES INCREASED [None]
  - CARDIO-RESPIRATORY ARREST [None]
  - DIABETES MELLITUS [None]
  - DIABETES MELLITUS INADEQUATE CONTROL [None]
  - HYPERTENSION [None]
  - MYOCARDIAL INFARCTION [None]
  - OBESITY [None]
  - POLYDIPSIA [None]
  - RENAL FAILURE ACUTE [None]
  - TARDIVE DYSKINESIA [None]
  - VISION BLURRED [None]
